FAERS Safety Report 10531066 (Version 5)
Quarter: 2015Q2

REPORT INFORMATION
  Report Type: Report from Study
  Country: US (occurrence: US)
  Receive Date: 20141021
  Receipt Date: 20150518
  Transmission Date: 20150821
  Serious: Yes (Hospitalization, Other)
  Sender: FDA-Public Use
  Company Number: US-SA-2013SA122646

PATIENT
  Age: 61 Year
  Sex: Female

DRUGS (8)
  1. TECFIDERA [Concomitant]
     Active Substance: DIMETHYL FUMARATE
  2. PULMICORT TURBUHALER [Concomitant]
     Active Substance: BUDESONIDE
  3. RHINOCORT [Concomitant]
     Active Substance: BUDESONIDE
  4. TOVIAZ [Concomitant]
     Active Substance: FESOTERODINE FUMARATE
  5. CALCIUM [Concomitant]
     Active Substance: CALCIUM
  6. AUBAGIO [Suspect]
     Active Substance: TERIFLUNOMIDE
     Indication: MULTIPLE SCLEROSIS
     Route: 048
     Dates: start: 20131025
  7. VITAMIN D3 [Concomitant]
     Active Substance: CHOLECALCIFEROL
  8. PAROXETINE [Concomitant]
     Active Substance: PAROXETINE\PAROXETINE HYDROCHLORIDE

REACTIONS (10)
  - Multiple sclerosis relapse [Unknown]
  - Muscular weakness [Not Recovered/Not Resolved]
  - Frequent bowel movements [Unknown]
  - Wheelchair user [Unknown]
  - Speech disorder [Not Recovered/Not Resolved]
  - Pollakiuria [Not Recovered/Not Resolved]
  - Peripheral swelling [Unknown]
  - General physical condition abnormal [Unknown]
  - Visual impairment [Not Recovered/Not Resolved]
  - Fatigue [Not Recovered/Not Resolved]
